FAERS Safety Report 8454636 (Version 2)
Quarter: 2012Q4

REPORT INFORMATION
  Report Type: Report from Study
  Country: US (occurrence: US)
  Receive Date: 20120312
  Receipt Date: 20121005
  Transmission Date: 20130627
  Serious: Yes (Death)
  Sender: FDA-Public Use
  Company Number: US-ABBOTT-12P-163-0913427-00

PATIENT
  Age: 26 Year
  Sex: Male
  Weight: 47.67 kg

DRUGS (10)
  1. CREON [Suspect]
     Indication: CYSTIC FIBROSIS
     Dosage: 3 caps with each meal + 1 with snacks
     Dates: start: 2002
  2. CREON [Suspect]
     Dates: end: 20120309
  3. ADVAIR [Concomitant]
     Indication: PRODUCT USED FOR UNKNOWN INDICATION
     Dosage: Diskus 250mcg-50mcg
     Route: 055
  4. ALBUTEROL [Concomitant]
     Indication: DYSPNOEA
     Dosage: 2.5 mg/3 ml, one vial nebulized up to 4X daily PRN
     Route: 055
  5. ALPRAZOLAM [Concomitant]
     Indication: DYSPNOEA
     Dosage: 1 Tablet every 4 hours as needed
     Route: 048
  6. ALPRAZOLAM [Concomitant]
     Indication: RESTLESSNESS
  7. CAYSTON [Concomitant]
     Indication: PRODUCT USED FOR UNKNOWN INDICATION
     Dosage: Powder for reconstitution, as directed
     Route: 055
  8. FUROSEMIDE [Concomitant]
     Indication: SWELLING
     Dosage: 1 tablet daily when needed
     Route: 048
  9. PREDNISONE [Concomitant]
     Indication: PRODUCT USED FOR UNKNOWN INDICATION
     Dosage: 2 tablets once daily for five days
     Route: 048
  10. TOBI SOLUTION FOR INHALATION [Concomitant]
     Indication: PRODUCT USED FOR UNKNOWN INDICATION
     Dosage: 300mg/5ml, one vial nebulized 2X daily, PRN
     Route: 055

REACTIONS (3)
  - Cystic fibrosis [Fatal]
  - Pneumonia [None]
  - General physical health deterioration [None]
